FAERS Safety Report 4687556-9 (Version None)
Quarter: 2005Q2

REPORT INFORMATION
  Report Type: 
  Country: None (occurrence: None)
  Receive Date: 20050610
  Receipt Date: 20050425
  Transmission Date: 20051028
  Serious: Yes (Hospitalization, Disabling, Other)
  Sender: FDA-Public Use
  Company Number: DE-AMGEN-UK128748

PATIENT
  Age: 75 Year
  Sex: Male
  Weight: 88.5 kg

DRUGS (3)
  1. MIMPARA [Suspect]
     Indication: HYPERPARATHYROIDISM SECONDARY
     Route: 048
     Dates: start: 20050304, end: 20050423
  2. ANTIHYPERTENSIVES [Concomitant]
     Route: 065
  3. CALCIUM GLUCONATE [Concomitant]
     Route: 065

REACTIONS (5)
  - BLINDNESS [None]
  - BLINDNESS UNILATERAL [None]
  - OPTIC NEUROPATHY [None]
  - VASCULITIS [None]
  - VISUAL ACUITY REDUCED [None]
